FAERS Safety Report 7251708-4 (Version None)
Quarter: 2011Q1

REPORT INFORMATION
  Report Type: 
  Country: None (occurrence: None)
  Receive Date: 20110128
  Receipt Date: 20110125
  Transmission Date: 20110831
  Serious: Yes (Other)
  Sender: FDA-Public Use
  Company Number: US-RB-020491-11

PATIENT
  Age: 29 Year
  Sex: Female

DRUGS (3)
  1. SUBOXONE [Suspect]
     Dosage: DOSING INFORMATION UNKNOWN
     Route: 065
  2. SUBOXONE [Suspect]
     Indication: DRUG DEPENDENCE
     Route: 060
     Dates: start: 20100801
  3. SUBUTEX [Suspect]
     Indication: PRODUCT USED FOR UNKNOWN INDICATION
     Dosage: UNKNOWN DOSING DETAILS
     Route: 065

REACTIONS (24)
  - NAUSEA [None]
  - URTICARIA [None]
  - PRURITUS [None]
  - CONVULSION [None]
  - INFLUENZA [None]
  - HYPERHIDROSIS [None]
  - SWELLING FACE [None]
  - GRAND MAL CONVULSION [None]
  - SWOLLEN TONGUE [None]
  - DECREASED APPETITE [None]
  - DIZZINESS [None]
  - MIGRAINE [None]
  - DRUG EXPOSURE DURING PREGNANCY [None]
  - CONSTIPATION [None]
  - VOMITING [None]
  - MYALGIA [None]
  - DYSPHAGIA [None]
  - HEADACHE [None]
  - LOSS OF CONSCIOUSNESS [None]
  - RASH [None]
  - AMBLYOPIA [None]
  - THROAT TIGHTNESS [None]
  - TREMOR [None]
  - INSOMNIA [None]
